FAERS Safety Report 10179296 (Version 2)
Quarter: 2014Q2

REPORT INFORMATION
  Report Type: Report from Study
  Country: US (occurrence: US)
  Receive Date: 20140519
  Receipt Date: 20140616
  Transmission Date: 20141212
  Serious: Yes (Other)
  Sender: FDA-Public Use
  Company Number: US-SA-2014SA061830

PATIENT
  Age: 80 Year
  Sex: Male

DRUGS (5)
  1. LOVENOX [Suspect]
     Indication: LUNG NEOPLASM MALIGNANT
     Dosage: EORM :SHOT
     Route: 065
  2. TYLENOL [Concomitant]
  3. ASPIRIN [Concomitant]
  4. MIRALAX [Concomitant]
  5. ALL OTHER THERAPEUTIC PRODUCTS [Concomitant]

REACTIONS (5)
  - Neoplasm malignant [Unknown]
  - Malaise [Unknown]
  - Weight decreased [Unknown]
  - Dyspnoea [Not Recovered/Not Resolved]
  - Off label use [Unknown]
